FAERS Safety Report 15049698 (Version 6)
Quarter: 2019Q4

REPORT INFORMATION
  Report Type: Spontaneous
  Country: US (occurrence: US)
  Receive Date: 20180622
  Receipt Date: 20191218
  Transmission Date: 20200122
  Serious: No
  Sender: FDA-Public Use
  Company Number: US-ADAMAS PHARMA, LLC-2018ADA00514

PATIENT
  Age: 66 Year
  Sex: Female

DRUGS (13)
  1. GOCOVRI [Suspect]
     Active Substance: AMANTADINE
     Dosage: 274 MG, 1X/DAY AT BEDTIME
     Route: 048
     Dates: start: 20180222, end: 2018
  2. GOCOVRI [Suspect]
     Active Substance: AMANTADINE
     Dosage: ALTERNATING TAKING 1 CAPSULE AND 2 CAPSULES DAILY
     Route: 048
     Dates: start: 2018, end: 2018
  3. GOCOVRI [Suspect]
     Active Substance: AMANTADINE
     Dosage: 274 MG, 1X/DAY AT BEDTIME
     Route: 048
     Dates: end: 2019
  4. CENTRUM SILVER [Concomitant]
     Active Substance: MINERALS\VITAMINS
  5. GOCOVRI [Suspect]
     Active Substance: AMANTADINE
     Dosage: 274 MG, 1X/DAY AT BEDTIME
     Route: 048
     Dates: start: 2018
  6. GOCOVRI [Suspect]
     Active Substance: AMANTADINE
     Dosage: 137 OR 274 MG, 1X/DAY AT BEDTIME (ALTERNATED 137 MG AND 274 MG, 1X/DAY)
     Route: 048
     Dates: start: 2019, end: 2019
  7. HYDROCHLOROTHIAZIDE. [Concomitant]
     Active Substance: HYDROCHLOROTHIAZIDE
  8. GOCOVRI [Suspect]
     Active Substance: AMANTADINE
     Indication: DYSKINESIA
     Dosage: 274 MG, 1X/DAY AT BEDTIME
     Route: 048
     Dates: start: 20180222
  9. CRANBERRY. [Concomitant]
     Active Substance: CRANBERRY
  10. GOCOVRI [Suspect]
     Active Substance: AMANTADINE
     Dosage: 274 MG, 1X/DAY AT BEDTIME
     Route: 048
     Dates: start: 2019
  11. ENALAPRIL [Concomitant]
     Active Substance: ENALAPRIL
  12. XANAX [Concomitant]
     Active Substance: ALPRAZOLAM
  13. CARBIDOPA/LEVODOPA [Concomitant]
     Active Substance: CARBIDOPA\LEVODOPA

REACTIONS (3)
  - Rash macular [Unknown]
  - Product dose omission [Recovered/Resolved]
  - Peripheral swelling [Not Recovered/Not Resolved]

NARRATIVE: CASE EVENT DATE: 201803
